FAERS Safety Report 4928510-9 (Version None)
Quarter: 2006Q1

REPORT INFORMATION
  Report Type: 
  Country: None (occurrence: None)
  Receive Date: 20060223
  Receipt Date: 20060214
  Transmission Date: 20060701
  Serious: Yes (Hospitalization, Other)
  Sender: FDA-Public Use
  Company Number: ESWYE391314FEB06

PATIENT
  Age: 42 Year
  Sex: Female

DRUGS (2)
  1. VENLAFAXINE HCL [Suspect]
     Indication: MENOPAUSAL SYMPTOMS
     Dosage: 37.5 MG 1X PER 1 DAY, ORAL
     Route: 048
     Dates: start: 20060202, end: 20060202
  2. TAMOXIFEN CITRATE [Concomitant]

REACTIONS (3)
  - ACUTE PULMONARY OEDEMA [None]
  - ANAPHYLACTIC REACTION [None]
  - SUFFOCATION FEELING [None]
